FAERS Safety Report 4950818-1 (Version None)
Quarter: 2006Q1

REPORT INFORMATION
  Report Type: 
  Country: None (occurrence: None)
  Receive Date: 20060322
  Receipt Date: 20060317
  Transmission Date: 20060701
  Serious: Yes (Hospitalization)
  Sender: FDA-Public Use
  Company Number: GB-SANOFI-SYNTHELABO-F01200600813

PATIENT
  Sex: Female
  Weight: 40.6 kg

DRUGS (2)
  1. OXALIPLATIN [Suspect]
     Indication: COLORECTAL CANCER METASTATIC
     Route: 041
     Dates: start: 20060306, end: 20060306
  2. CAPECITABINE [Suspect]
     Dosage: 2600 MG DAYS 1-14 EVERY 3 WEEKS
     Route: 048
     Dates: start: 20060306

REACTIONS (4)
  - DYSPNOEA [None]
  - HYPOMAGNESAEMIA [None]
  - HYPOPHOSPHATAEMIA [None]
  - TETANY [None]
